APPROVED DRUG PRODUCT: BUTALAN
Active Ingredient: BUTABARBITAL SODIUM
Strength: 33.3MG/5ML
Dosage Form/Route: ELIXIR;ORAL
Application: A085880 | Product #001
Applicant: LANNETT CO INC
Approved: Approved Prior to Jan 1, 1982 | RLD: No | RS: No | Type: DISCN